FAERS Safety Report 18691731 (Version 1)
Quarter: 2021Q1

REPORT INFORMATION
  Report Type: Spontaneous
  Country: DE (occurrence: DE)
  Receive Date: 20210102
  Receipt Date: 20210102
  Transmission Date: 20210419
  Serious: Yes (Other)
  Sender: FDA-Public Use
  Company Number: DE-SUN PHARMACEUTICAL INDUSTRIES LTD-2020RR-273473

PATIENT
  Age: 1 Day
  Sex: Female
  Weight: 2.8 kg

DRUGS (4)
  1. L?THYROXIN [Concomitant]
     Active Substance: LEVOTHYROXINE SODIUM
     Indication: HYPOTHYROIDISM
     Dosage: 175 MICROGRAM/D (TO 100)
     Route: 064
     Dates: start: 20190730, end: 20200516
  2. CITALOPRAM [Suspect]
     Active Substance: CITALOPRAM HYDROBROMIDE
     Indication: DEPRESSION
     Dosage: 10 MG/D (TO 5 MG/D)
     Route: 064
     Dates: start: 20190730, end: 20200516
  3. THYBON [Concomitant]
     Active Substance: LIOTHYRONINE
     Indication: HYPOTHYROIDISM
     Dosage: 10 MICROGRAM/D
     Route: 064
     Dates: start: 20190730, end: 20200516
  4. AMOXICILLIN. [Concomitant]
     Active Substance: AMOXICILLIN
     Indication: SINUSITIS
     Dosage: UNK
     Route: 064

REACTIONS (2)
  - Small for dates baby [Recovering/Resolving]
  - Foetal exposure during pregnancy [Unknown]

NARRATIVE: CASE EVENT DATE: 20200516
